FAERS Safety Report 11484443 (Version 8)
Quarter: 2020Q4

REPORT INFORMATION
  Report Type: Spontaneous
  Country: US (occurrence: US)
  Receive Date: 20150909
  Receipt Date: 20201222
  Transmission Date: 20210113
  Serious: Yes (Other)
  Sender: FDA-Public Use
  Company Number: US-JAZZ-2015-US-000864

PATIENT
  Age: 54 Year
  Sex: Female

DRUGS (17)
  1. MELATONIN [Concomitant]
     Active Substance: MELATONIN
  2. DESIPRAMINE HCL [Concomitant]
     Active Substance: DESIPRAMINE HYDROCHLORIDE
     Indication: NEUROPATHY PERIPHERAL
  3. ESTRADIOL. [Concomitant]
     Active Substance: ESTRADIOL
  4. BENTYL [Concomitant]
     Active Substance: DICYCLOMINE HYDROCHLORIDE
  5. XYREM [Suspect]
     Active Substance: SODIUM OXYBATE
     Indication: NARCOLEPSY
     Dosage: 2.25 G, BID
     Route: 048
     Dates: start: 201308, end: 2013
  6. XYREM [Suspect]
     Active Substance: SODIUM OXYBATE
     Dosage: 4.5 G, BID
     Route: 048
     Dates: start: 2013
  7. HYDROCODONE BITARTRATE AND ACETAMINOPHEN [Concomitant]
     Active Substance: ACETAMINOPHEN\HYDROCODONE BITARTRATE
  8. WELLBUTRIN [Concomitant]
     Active Substance: BUPROPION HYDROCHLORIDE
  9. GABAPENTIN. [Suspect]
     Active Substance: GABAPENTIN
     Indication: NEUROPATHY PERIPHERAL
     Dosage: UNK
     Route: 048
  10. TRAMADOL. [Suspect]
     Active Substance: TRAMADOL
     Indication: NEUROPATHY PERIPHERAL
     Dosage: TWICE DAILY
     Route: 065
  11. OXYCONTIN [Concomitant]
     Active Substance: OXYCODONE HYDROCHLORIDE
  12. NORTRIPTYLINE HCL [Concomitant]
     Active Substance: NORTRIPTYLINE HYDROCHLORIDE
  13. VALERIANA OFFICINALIS ROOT [Concomitant]
     Active Substance: VALERIAN
  14. XYREM [Suspect]
     Active Substance: SODIUM OXYBATE
     Indication: CATAPLEXY
     Dosage: DOSE ADJUSTMENTS
     Route: 048
  15. DESIPRAMINE [Suspect]
     Active Substance: DESIPRAMINE
     Indication: NEUROPATHY PERIPHERAL
  16. CYMBALTA [Suspect]
     Active Substance: DULOXETINE HYDROCHLORIDE
     Indication: PRODUCT USED FOR UNKNOWN INDICATION
  17. VENLAFAXINE HCL [Concomitant]
     Active Substance: VENLAFAXINE HYDROCHLORIDE

REACTIONS (17)
  - Motion sickness [Not Recovered/Not Resolved]
  - Vertigo [Recovered/Resolved]
  - Somnolence [Unknown]
  - Weight decreased [Not Recovered/Not Resolved]
  - Drug interaction [Unknown]
  - Nausea [Not Recovered/Not Resolved]
  - Amnesia [Not Recovered/Not Resolved]
  - Vomiting [Not Recovered/Not Resolved]
  - Fatigue [Not Recovered/Not Resolved]
  - Adverse drug reaction [Unknown]
  - Dysphemia [Unknown]
  - Malaise [Unknown]
  - Poor quality sleep [Not Recovered/Not Resolved]
  - Drug ineffective [Unknown]
  - Neuropathy peripheral [Not Recovered/Not Resolved]
  - Muscle disorder [Unknown]
  - Dizziness [Recovered/Resolved]

NARRATIVE: CASE EVENT DATE: 201701
